FAERS Safety Report 10082360 (Version 2)
Quarter: 2014Q2

REPORT INFORMATION
  Report Type: Spontaneous
  Country: DE (occurrence: DE)
  Receive Date: 20140416
  Receipt Date: 20140416
  Transmission Date: 20141212
  Serious: Yes (Other)
  Sender: FDA-Public Use
  Company Number: DE-SA-2014SA035886

PATIENT
  Age: 47 Year
  Sex: Female

DRUGS (2)
  1. AUBAGIO [Suspect]
     Indication: MULTIPLE SCLEROSIS
     Route: 048
     Dates: start: 201310, end: 2014
  2. LYRICA [Concomitant]
     Indication: PAIN
     Route: 048
     Dates: start: 2012

REACTIONS (2)
  - Alopecia [Unknown]
  - Pneumonia [Recovered/Resolved]
